FAERS Safety Report 16420033 (Version 2)
Quarter: 2019Q3

REPORT INFORMATION
  Report Type: Spontaneous
  Country: US (occurrence: US)
  Receive Date: 20190612
  Receipt Date: 20190809
  Transmission Date: 20191004
  Serious: No
  Sender: FDA-Public Use
  Company Number: US-ASTRAZENECA-2019SE73321

PATIENT
  Age: 80 Year
  Sex: Male
  Weight: 70.3 kg

DRUGS (2)
  1. POTASSIUM [Concomitant]
     Active Substance: POTASSIUM
  2. SYMBICORT [Suspect]
     Active Substance: BUDESONIDE\FORMOTEROL FUMARATE DIHYDRATE
     Indication: CHRONIC OBSTRUCTIVE PULMONARY DISEASE
     Dosage: SYMBICORT 160/4.5 MCG, 2 PUFFS TWICE DAILY
     Route: 055

REACTIONS (5)
  - Productive cough [Not Recovered/Not Resolved]
  - Incorrect dose administered by device [Recovered/Resolved]
  - Device ineffective [Unknown]
  - Intentional device misuse [Recovered/Resolved]
  - Chronic obstructive pulmonary disease [Recovered/Resolved]
